FAERS Safety Report 7234406-2 (Version None)
Quarter: 2011Q1

REPORT INFORMATION
  Report Type: 
  Country: None (occurrence: None)
  Receive Date: 20110119
  Receipt Date: 20110112
  Transmission Date: 20110831
  Serious: Yes (Disabling)
  Sender: FDA-Public Use
  Company Number: GB-PFIZER INC-2011008561

PATIENT

DRUGS (6)
  1. CETIRIZINE [Concomitant]
  2. SALBUTAMOL [Concomitant]
     Route: 055
  3. VENLAFAXINE HCL [Suspect]
     Indication: DEPRESSION
  4. CITALOPRAM [Concomitant]
     Dosage: 40 MG, UNK
     Route: 048
  5. SERETIDE [Concomitant]
     Route: 055
  6. VENLAFAXINE HCL [Suspect]
     Indication: ANXIETY
     Dosage: 150 MG, 2X/DAY
     Route: 048
     Dates: start: 20100701, end: 20101001

REACTIONS (14)
  - SUICIDAL IDEATION [None]
  - ANXIETY [None]
  - ILLUSION [None]
  - AMNESIA [None]
  - DEPRESSED MOOD [None]
  - PERSECUTORY DELUSION [None]
  - CONFUSIONAL STATE [None]
  - HEADACHE [None]
  - VISION BLURRED [None]
  - PARAESTHESIA [None]
  - INSOMNIA [None]
  - COORDINATION ABNORMAL [None]
  - IRRITABILITY [None]
  - RESTLESSNESS [None]
